FAERS Safety Report 7092987-6 (Version None)
Quarter: 2010Q4

REPORT INFORMATION
  Report Type: 
  Country: None (occurrence: None)
  Receive Date: 20101110
  Receipt Date: 20080718
  Transmission Date: 20110411
  Serious: Yes (Other)
  Sender: FDA-Public Use
  Company Number: US-KINGPHARMUSA00001-K200800331

PATIENT
  Sex: Female
  Weight: 73.923 kg

DRUGS (1)
  1. BICILLIN L-A [Suspect]
     Indication: PHARYNGITIS STREPTOCOCCAL
     Dosage: 1,200,000 U, SINGLE
     Route: 030
     Dates: start: 20080225, end: 20080225

REACTIONS (6)
  - INJECTION SITE ABSCESS [None]
  - INJECTION SITE DISCHARGE [None]
  - INJECTION SITE ERYTHEMA [None]
  - INJECTION SITE INFECTION [None]
  - INJECTION SITE SWELLING [None]
  - SKIN DISORDER [None]
